FAERS Safety Report 4461943-6 (Version None)
Quarter: 2004Q3

REPORT INFORMATION
  Report Type: 
  Country: None (occurrence: None)
  Receive Date: 20040929
  Receipt Date: 20030223
  Transmission Date: 20050211
  Serious: No
  Sender: FDA-Public Use
  Company Number: US-GLAXOSMITHKLINE-A0441030A

PATIENT
  Age: 72 Year
  Sex: Female

DRUGS (7)
  1. SEREVENT [Suspect]
     Indication: ILL-DEFINED DISORDER
     Route: 055
     Dates: start: 20010701
  2. AZMACORT [Concomitant]
  3. UNIPHYL [Concomitant]
  4. LIPITOR [Concomitant]
  5. SYNTHROID [Concomitant]
  6. COMBIVENT [Concomitant]
  7. ADVAIR DISKUS 100/50 [Concomitant]

REACTIONS (2)
  - ORAL PAIN [None]
  - PHARMACEUTICAL PRODUCT COMPLAINT [None]
